FAERS Safety Report 9456428 (Version 1)
Quarter: 2013Q3

REPORT INFORMATION
  Report Type: Spontaneous
  Country: US (occurrence: US)
  Receive Date: 20130813
  Receipt Date: 20130813
  Transmission Date: 20140515
  Serious: Yes (Hospitalization)
  Sender: FDA-Public Use
  Company Number: US-PERRIGO-13US008100

PATIENT
  Age: 14 Year
  Sex: Male
  Weight: 66.4 kg

DRUGS (4)
  1. ACETAMINOPHEN 650MG ER 544 [Suspect]
     Indication: PAIN
     Dosage: UNK
     Route: 048
  2. FLURBIPROFEN [Suspect]
     Indication: ARTHRALGIA
     Dosage: 100 MG EVERY 12 HOURS
     Route: 048
  3. PROPOXYPHENE HCL [Concomitant]
     Indication: PAIN
     Dosage: UNK
     Route: 048
  4. MEPERIDINE [Suspect]
     Indication: PAIN
     Dosage: UNK
     Route: 065

REACTIONS (5)
  - Renal impairment [Recovered/Resolved]
  - Flank pain [Recovered/Resolved]
  - Vomiting [Recovered/Resolved]
  - Dehydration [Recovered/Resolved]
  - Blood pressure increased [Recovered/Resolved]
